FAERS Safety Report 8382063-4 (Version None)
Quarter: 2012Q2

REPORT INFORMATION
  Report Type: 
  Country: None (occurrence: None)
  Receive Date: 20120523
  Receipt Date: 20120523
  Transmission Date: 20120825
  Serious: Yes (Hospitalization)
  Sender: FDA-Public Use
  Company Number: None

PATIENT
  Sex: Male
  Weight: 52 kg

DRUGS (15)
  1. ENOXAPARIN 80MG SQ DAILY [Concomitant]
  2. PANTOPRAZOLE 40MG PO DAILY [Concomitant]
  3. ZOLEDRONIC ACID 4MG IV ON 8/24, 9/11 -INFUSED OVER 15 MINUTES- [Concomitant]
  4. GABAPENTIN [Concomitant]
  5. ONDANSETRON 8MG PO Q8H [Concomitant]
  6. OXYCONTIN 5-10MG PO Q6H PRN PAIN [Concomitant]
  7. PHOSNAK 1 PACKET PO TID [Concomitant]
  8. FLUOXETINE 10MG PO QAM [Concomitant]
  9. MORPHINE SULFATE 30MG PO QAM, 60MG PO IN THE AFTERNOON, 60MG PO QPM [Concomitant]
  10. ZOLEDRONIC ACID [Suspect]
     Indication: HYPERCALCAEMIA OF MALIGNANCY
     Dosage: 4 MG X1 IV BOLUS
     Route: 040
     Dates: start: 20110824, end: 20110824
  11. ZOLEDRONIC ACID [Suspect]
     Indication: MULTIPLE MYELOMA
     Dosage: 4 MG X1 IV BOLUS
     Route: 040
     Dates: start: 20110824, end: 20110824
  12. ZOLEDRONIC ACID [Suspect]
     Indication: HYPERCALCAEMIA OF MALIGNANCY
     Dosage: 4 MG X1 IV BOLUS
     Route: 040
     Dates: start: 20110911, end: 20110911
  13. ZOLEDRONIC ACID [Suspect]
     Indication: MULTIPLE MYELOMA
     Dosage: 4 MG X1 IV BOLUS
     Route: 040
     Dates: start: 20110911, end: 20110911
  14. BORTEZOMIB: 2.1MG IV ON 8/27, 8/30, 9/3, 9/6, 9/16, 9/19 [Concomitant]
  15. SODIUM CHLORIDE 2G PO BID [Concomitant]

REACTIONS (4)
  - TOOTH LOSS [None]
  - EXPOSED BONE IN JAW [None]
  - OSTEONECROSIS OF JAW [None]
  - PURULENCE [None]
